FAERS Safety Report 15261511 (Version 1)
Quarter: 2018Q3

REPORT INFORMATION
  Report Type: Spontaneous
  Country: US (occurrence: US)
  Receive Date: 20180809
  Receipt Date: 20180809
  Transmission Date: 20181010
  Serious: No
  Sender: FDA-Public Use
  Company Number: US-GLAXOSMITHKLINE-US2018GSK135817

PATIENT
  Sex: Female

DRUGS (1)
  1. NUCALA [Suspect]
     Active Substance: MEPOLIZUMAB
     Indication: PRODUCT USED FOR UNKNOWN INDICATION
     Dosage: 100 MG, UNK
     Route: 058

REACTIONS (5)
  - Muscular weakness [Recovering/Resolving]
  - Initial insomnia [Unknown]
  - Back pain [Recovering/Resolving]
  - Urticaria [Recovering/Resolving]
  - Muscle tightness [Unknown]
